FAERS Safety Report 9856725 (Version 1)
Quarter: 2014Q1

REPORT INFORMATION
  Report Type: Spontaneous
  Country: FR (occurrence: FR)
  Receive Date: 20140130
  Receipt Date: 20140130
  Transmission Date: 20141002
  Serious: Yes (Other)
  Sender: FDA-Public Use
  Company Number: FR-GLAXOSMITHKLINE-B0963045A

PATIENT
  Age: 45 Year
  Sex: Female

DRUGS (1)
  1. ZINNAT [Suspect]
     Indication: SINUSITIS
     Route: 048
     Dates: start: 20111105

REACTIONS (4)
  - Anaphylactic reaction [Recovered/Resolved]
  - Rash [Recovered/Resolved]
  - Pruritus generalised [Recovered/Resolved]
  - Loss of consciousness [Recovered/Resolved]
